FAERS Safety Report 11203894 (Version 1)
Quarter: 2015Q2

REPORT INFORMATION
  Report Type: Spontaneous
  Country: US (occurrence: US)
  Receive Date: 20150619
  Receipt Date: 20150619
  Transmission Date: 20150821
  Serious: No
  Sender: FDA-Public Use
  Company Number: US-GLAXOSMITHKLINE-US2015086485

PATIENT
  Age: 15 Year
  Sex: Female

DRUGS (2)
  1. ZARONTIN [Concomitant]
     Active Substance: ETHOSUXIMIDE
  2. LAMICTAL [Suspect]
     Active Substance: LAMOTRIGINE
     Indication: PETIT MAL EPILEPSY
     Dosage: 100 MG, U
     Dates: start: 20150419

REACTIONS (2)
  - Menorrhagia [Recovered/Resolved]
  - Hormone level abnormal [Recovered/Resolved]

NARRATIVE: CASE EVENT DATE: 20150419
